FAERS Safety Report 5795847-3 (Version None)
Quarter: 2008Q3

REPORT INFORMATION
  Report Type: 
  Country: None (occurrence: None)
  Receive Date: 20080701
  Receipt Date: 20080617
  Transmission Date: 20090109
  Serious: Yes (Hospitalization, Other)
  Sender: FDA-Public Use
  Company Number: US-BAYER-200824528NA

PATIENT
  Age: 14 Year
  Sex: Female
  Weight: 57 kg

DRUGS (3)
  1. LEUKINE [Suspect]
     Indication: ALVEOLAR PROTEINOSIS
     Route: 058
     Dates: start: 20060101, end: 20070101
  2. LEUKINE [Suspect]
     Indication: ALVEOLAR PROTEINOSIS
     Dosage: TOTAL DAILY DOSE: 250 ?G
     Route: 058
     Dates: start: 20080101, end: 20080528
  3. LEUKINE [Suspect]
     Dosage: TOTAL DAILY DOSE: 250 ?G
     Route: 058
     Dates: start: 20080603

REACTIONS (5)
  - ALLERGENIC DESENSITISATION PROCEDURE [None]
  - ANAPHYLACTIC REACTION [None]
  - CHEST PAIN [None]
  - CHILLS [None]
  - DIZZINESS [None]
